FAERS Safety Report 4659043-5 (Version None)
Quarter: 2005Q2

REPORT INFORMATION
  Report Type: 
  Country: None (occurrence: None)
  Receive Date: 20050509
  Receipt Date: 20050419
  Transmission Date: 20051028
  Serious: Yes (Hospitalization)
  Sender: FDA-Public Use
  Company Number: A0555662A

PATIENT
  Age: 13 Year
  Sex: Female

DRUGS (5)
  1. PAXIL [Suspect]
     Indication: DEPRESSION
     Dosage: 20 MG/PER DAY/ORAL
     Route: 048
     Dates: start: 20020101, end: 20030101
  2. PAXIL CR [Suspect]
     Indication: DEPRESSION
     Dosage: 12.5 MG/PER DAY/ORAL
     Route: 048
     Dates: start: 20030301, end: 20030101
  3. BUPROPION HYDROCHLORIDE [Concomitant]
  4. SEMISODIUM VALPROATE [Concomitant]
  5. RISPERIDONE [Concomitant]

REACTIONS (5)
  - SELF MUTILATION [None]
  - SUICIDAL IDEATION [None]
  - SUICIDE ATTEMPT [None]
  - TREATMENT NONCOMPLIANCE [None]
  - WEIGHT INCREASED [None]
